FAERS Safety Report 7831720-4 (Version None)
Quarter: 2011Q4

REPORT INFORMATION
  Report Type: 
  Country: None (occurrence: None)
  Receive Date: 20111019
  Receipt Date: 20111010
  Transmission Date: 20120403
  Serious: Yes (Death, Hospitalization, Other)
  Sender: FDA-Public Use
  Company Number: AUR-APL-2011-05236

PATIENT
  Age: 86 Year
  Sex: Female

DRUGS (4)
  1. METFORMIN HCL [Suspect]
     Indication: TYPE 2 DIABETES MELLITUS
     Dosage: 2000 MG (500 MG,4 IN 1 D),ORAL
     Route: 048
  2. AMLODIPINE (AMLODIPINE) AMLODIPINE (AMLODIPINE) [Concomitant]
  3. COZAAR COMP (HYZAAR /01284801/) COZAAR COMP (HYZAAR /01284801/) [Concomitant]
  4. DIGOXITOXIN (DIGOXITOXIN) DIGOXITOXIN (DIGOXITOXIN) [Concomitant]

REACTIONS (6)
  - DIARRHOEA [None]
  - VOMITING [None]
  - DRUG LEVEL ABOVE THERAPEUTIC [None]
  - DEHYDRATION [None]
  - RENAL FAILURE ACUTE [None]
  - LACTIC ACIDOSIS [None]
